FAERS Safety Report 9903370 (Version 3)
Quarter: 2014Q4

REPORT INFORMATION
  Report Type: Spontaneous
  Country: US (occurrence: US)
  Receive Date: 20140217
  Receipt Date: 20141017
  Transmission Date: 20150529
  Serious: Yes (Hospitalization, Other)
  Sender: FDA-Public Use
  Company Number: US-009507513-1402USA007333

PATIENT
  Sex: Female

DRUGS (2)
  1. NUVARING [Suspect]
     Active Substance: ETHINYL ESTRADIOL\ETONOGESTREL
     Indication: CONTRACEPTION
     Dosage: UNK
     Route: 067
     Dates: start: 200603
  2. DILAUDID [Suspect]
     Active Substance: HYDROMORPHONE HYDROCHLORIDE
     Indication: PAIN
     Dosage: UNK
     Dates: start: 20120118

REACTIONS (14)
  - Pain in extremity [Unknown]
  - Pulmonary embolism [Unknown]
  - Back pain [Unknown]
  - Goitre [Unknown]
  - Nausea [Recovered/Resolved]
  - Urinary tract infection [Unknown]
  - Appendicectomy [Unknown]
  - Hilar lymphadenopathy [Unknown]
  - Cholecystectomy [Unknown]
  - Dyspnoea [Unknown]
  - Pruritus [Unknown]
  - Pulmonary embolism [Unknown]
  - Deep vein thrombosis [Unknown]
  - Radiculopathy [Unknown]

NARRATIVE: CASE EVENT DATE: 2012
